FAERS Safety Report 15664859 (Version 1)
Quarter: 2018Q4

REPORT INFORMATION
  Report Type: Spontaneous
  Country: US (occurrence: US)
  Receive Date: 20181128
  Receipt Date: 20181128
  Transmission Date: 20190205
  Serious: No
  Sender: FDA-Public Use
  Company Number: US-KERYX BIOPHARMACEUTICALS INC.-2018US004231

PATIENT

DRUGS (2)
  1. AURYXIA [Suspect]
     Active Substance: TETRAFERRIC TRICITRATE DECAHYDRATE
     Indication: PRODUCT USED FOR UNKNOWN INDICATION
     Dosage: UNK
  2. IRON                               /00023503/ [Concomitant]
     Active Substance: IRON
     Dosage: UNK
     Route: 042

REACTIONS (2)
  - Serum ferritin increased [Unknown]
  - Transferrin saturation increased [Unknown]
